FAERS Safety Report 12144075 (Version 3)
Quarter: 2016Q1

REPORT INFORMATION
  Report Type: Report from Study
  Country: US (occurrence: US)
  Receive Date: 20160304
  Receipt Date: 20160331
  Transmission Date: 20160526
  Serious: Yes (Hospitalization)
  Sender: FDA-Public Use
  Company Number: US-GILEAD-2016-0199862

PATIENT
  Age: 49 Year
  Sex: Female

DRUGS (4)
  1. METOLAZONE. [Concomitant]
     Active Substance: METOLAZONE
     Indication: FLUID RETENTION
     Dosage: 2.5 MG, QD
     Route: 065
  2. AMBRISENTAN [Suspect]
     Active Substance: AMBRISENTAN
     Indication: PULMONARY HYPERTENSION
     Dosage: 5 MG, QD
     Route: 065
     Dates: start: 20160202
  3. REMODULIN [Suspect]
     Active Substance: TREPROSTINIL
     Indication: PULMONARY ARTERIAL HYPERTENSION
     Dosage: 0.014 UG/KG, UNK
     Route: 058
     Dates: start: 20140404
  4. POTASSIUM [Concomitant]
     Active Substance: POTASSIUM
     Indication: FLUID RETENTION
     Dosage: 20 MEQ, QD
     Route: 065

REACTIONS (2)
  - Dyspnoea [Not Recovered/Not Resolved]
  - Fluid retention [Not Recovered/Not Resolved]
